FAERS Safety Report 5910461-4 (Version None)
Quarter: 2008Q4

REPORT INFORMATION
  Report Type: 
  Country: None (occurrence: None)
  Receive Date: 20081007
  Receipt Date: 20080924
  Transmission Date: 20090506
  Serious: Yes (Other)
  Sender: FDA-Public Use
  Company Number: FR-TEVA-178143ISR

PATIENT
  Age: 33 Year
  Sex: Male

DRUGS (4)
  1. PREDNISOLONE [Suspect]
  2. PREDNISONE [Suspect]
  3. TACROLIMUS [Suspect]
  4. MYCOPHENOLATE MOFETIL [Suspect]

REACTIONS (6)
  - HYPERGLYCAEMIA [None]
  - IMPLANT SITE PAPULES [None]
  - RASH MACULAR [None]
  - SERUM SICKNESS [None]
  - SKIN ATROPHY [None]
  - TRANSPLANT REJECTION [None]
